FAERS Safety Report 11259806 (Version 1)
Quarter: 2015Q3

REPORT INFORMATION
  Report Type: Spontaneous
  Country: US (occurrence: None)
  Receive Date: 20150709
  Receipt Date: 20150709
  Transmission Date: 20151125
  Serious: Yes (Hospitalization)
  Sender: FDA-Public Use
  Company Number: None

PATIENT
  Age: 47 Year
  Sex: Female

DRUGS (3)
  1. LYRICA [Suspect]
     Active Substance: PREGABALIN
     Dates: start: 20140115, end: 20140730
  2. TEGRETOL [Suspect]
     Active Substance: CARBAMAZEPINE
     Dates: start: 20140213, end: 20140730
  3. GLATIRAMER ACETATE (CAPAXONE) [Concomitant]

REACTIONS (1)
  - Drug-induced liver injury [None]

NARRATIVE: CASE EVENT DATE: 20140730
